FAERS Safety Report 6043144-3 (Version None)
Quarter: 2009Q1

REPORT INFORMATION
  Report Type: 
  Country: None (occurrence: None)
  Receive Date: 20090119
  Receipt Date: 20090109
  Transmission Date: 20090719
  Serious: Yes (Life-Threatening, Hospitalization, Other)
  Sender: FDA-Public Use
  Company Number: US-ROCHE-604659

PATIENT
  Sex: Female

DRUGS (3)
  1. PEG-INTERFERON A-2A (RO 25-8310) [Suspect]
     Indication: HEPATITIS C
     Dosage: FORM: PFS.
     Route: 065
     Dates: start: 20080301
  2. RIBAVIRIN [Suspect]
     Indication: HEPATITIS C
     Route: 065
     Dates: start: 20080301
  3. RIBAVIRIN [Suspect]
     Dosage: DOSE REDUCED.
     Route: 065

REACTIONS (10)
  - ACCIDENTAL OVERDOSE [None]
  - ANOREXIA [None]
  - BLOOD POTASSIUM DECREASED [None]
  - FOLATE DEFICIENCY [None]
  - HYPOVITAMINOSIS [None]
  - NEUTROPHIL COUNT ABNORMAL [None]
  - SKIN ULCER [None]
  - VITAMIN B12 DEFICIENCY [None]
  - WEIGHT DECREASED [None]
  - WHITE BLOOD CELL COUNT DECREASED [None]
